FAERS Safety Report 8451980-9 (Version None)
Quarter: 2012Q2

REPORT INFORMATION
  Report Type: 
  Country: None (occurrence: None)
  Receive Date: 20120620
  Receipt Date: 20120327
  Transmission Date: 20120825
  Serious: No
  Sender: FDA-Public Use
  Company Number: US-VERTEX PHARMACEUTICALS INC.-AE-2012-004453

PATIENT
  Sex: Female
  Weight: 56.75 kg

DRUGS (6)
  1. RIBAVIRIN [Concomitant]
     Indication: HEPATITIS C
     Dates: start: 20120125, end: 20120214
  2. RIBAVIRIN [Concomitant]
     Dates: start: 20120215
  3. INCIVEK [Suspect]
     Indication: HEPATITIS C
     Route: 048
     Dates: start: 20120125
  4. PEGASYS [Concomitant]
     Indication: HEPATITIS C
     Route: 058
     Dates: start: 20120125
  5. CITALOPRAM [Concomitant]
     Dates: start: 20100101
  6. ALPRAZOLAM [Concomitant]

REACTIONS (2)
  - WHITE BLOOD CELL COUNT DECREASED [None]
  - ANAEMIA [None]
